FAERS Safety Report 7903465 (Version 3)
Quarter: 2014Q2

REPORT INFORMATION
  Report Type: Spontaneous
  Country: US (occurrence: US)
  Receive Date: 20110418
  Receipt Date: 20140620
  Transmission Date: 20141212
  Serious: Yes (Hospitalization, Other)
  Sender: FDA-Public Use
  Company Number: US-ASTRAZENECA-2011SE20809

PATIENT
  Age: 63 Year
  Sex: Female

DRUGS (3)
  1. NEXIUM [Suspect]
     Route: 048
  2. CRESTOR [Suspect]
     Route: 048
  3. UNSPECIFIED [Concomitant]

REACTIONS (10)
  - Myocardial infarction [Unknown]
  - Coma [Unknown]
  - Pneumonia [Unknown]
  - Coronary artery occlusion [Unknown]
  - Artery dissection [Unknown]
  - Gastrooesophageal reflux disease [Unknown]
  - Dyspepsia [Unknown]
  - Cardiac disorder [Unknown]
  - Oesophageal spasm [Unknown]
  - Drug dose omission [Unknown]
